FAERS Safety Report 11672067 (Version 2)
Quarter: 2015Q4

REPORT INFORMATION
  Report Type: Spontaneous
  Country: US (occurrence: US)
  Receive Date: 20151028
  Receipt Date: 20151120
  Transmission Date: 20160304
  Serious: Yes (Hospitalization)
  Sender: FDA-Public Use
  Company Number: US-STRIDES ARCOLAB LIMITED-2015SP001608

PATIENT

DRUGS (2)
  1. METRONIDAZOLE. [Concomitant]
     Active Substance: METRONIDAZOLE
     Indication: CLOSTRIDIUM DIFFICILE COLITIS
     Dosage: UNK
     Route: 048
  2. VANCOMYCIN [Suspect]
     Active Substance: VANCOMYCIN
     Indication: CLOSTRIDIUM DIFFICILE COLITIS
     Dosage: UNK
     Route: 048

REACTIONS (7)
  - Blister [Recovered/Resolved]
  - Lip erosion [Recovered/Resolved]
  - Encephalitis autoimmune [None]
  - Linear IgA disease [Recovered/Resolved]
  - Coma [None]
  - Koebner phenomenon [Recovered/Resolved]
  - Oral mucosa erosion [Recovered/Resolved]
